FAERS Safety Report 24697590 (Version 1)
Quarter: 2024Q4

REPORT INFORMATION
  Report Type: Spontaneous
  Country: GB (occurrence: GB)
  Receive Date: 20241204
  Receipt Date: 20241204
  Transmission Date: 20250115
  Serious: Yes (Life-Threatening, Hospitalization, Other)
  Sender: ORGANON
  Company Number: None

PATIENT
  Age: 62 Year
  Sex: Female
  Weight: 145 kg

DRUGS (15)
  1. LOSARTAN POTASSIUM [Suspect]
     Active Substance: LOSARTAN POTASSIUM
     Indication: Essential hypertension
     Dosage: ONE TO BE TAKEN EACH DAY
     Dates: start: 20241017, end: 20241122
  2. VOLTAROL 12 HOUR EMULGEL [Concomitant]
     Dosage: TWICE DAILY REGULARLY.
     Dates: start: 20240829
  3. PREDNISOLONE [Concomitant]
     Active Substance: PREDNISOLONE
     Dosage: EIGHT TO BE TAKEN EACH DAY
     Dates: start: 20240829, end: 20241022
  4. CLARITHROMYCIN [Concomitant]
     Active Substance: CLARITHROMYCIN
     Dosage: ONE TO BE TAKEN TWICE A DAY
     Dates: start: 20240829, end: 20241022
  5. CLARITHROMYCIN [Concomitant]
     Active Substance: CLARITHROMYCIN
     Dosage: ONE TO BE TAKEN TWICE A DAY
     Dates: start: 20241021, end: 20241119
  6. CLINDAMYCIN [Concomitant]
     Active Substance: CLINDAMYCIN
     Dosage: THREE TO BE TAKEN FOUR TIMES A DAY
     Dates: start: 20241001, end: 20241030
  7. PREDNISOLONE [Concomitant]
     Active Substance: PREDNISOLONE
     Dosage: EIGHT TO BE TAKEN EACH DAY, THEN REDUCE BY ONE TABLET EVERY DAY UNTIL COURSE FINISHED
     Dates: start: 20241001, end: 20241030
  8. EXUFIBER AG+ [Concomitant]
     Dosage: AS DIRECTED
     Dates: start: 20241016
  9. ACETAMINOPHEN [Concomitant]
     Active Substance: ACETAMINOPHEN
     Dosage: TAKE TWO FOUR TIMES A DAY
     Dates: start: 20241016, end: 20241120
  10. MORPHINE [Concomitant]
     Active Substance: MORPHINE
     Dosage: 1-2ML EVERY 4 HOURS IF NEEDED FOR PAIN
     Dates: start: 20241016
  11. MORPHINE [Concomitant]
     Active Substance: MORPHINE
     Dosage: ONE TO BE TAKEN EVERY 12 HOURS
     Dates: start: 20241025, end: 20241108
  12. CUTIMED [Concomitant]
     Dosage: AS DIRECTED (SORBACT SWAB 7CM X 9CM (ESSITY UK LTD))
     Dates: start: 20241021
  13. DOXYCYCLINE [Concomitant]
     Active Substance: DOXYCYCLINE
     Dosage: ONE TO BE TAKEN TWICE A DAY
     Dates: start: 20241024, end: 20241122
  14. TETRACYCLINE [Concomitant]
     Active Substance: TETRACYCLINE
     Dosage: ONE TO BE TAKEN FOUR TIMES A DAY
     Dates: start: 20241025
  15. MORPHINE [Concomitant]
     Active Substance: MORPHINE
     Dosage: ONE CAPSULE TO BE TAKEN EVERY 12 HOURS
     Dates: start: 20241108, end: 20241122

REACTIONS (1)
  - Hyperkalaemia [Recovered/Resolved]
